FAERS Safety Report 21376666 (Version 13)
Quarter: 2025Q3

REPORT INFORMATION
  Report Type: Spontaneous
  Country: CA (occurrence: CA)
  Receive Date: 20220926
  Receipt Date: 20250802
  Transmission Date: 20251021
  Serious: Yes (Other)
  Sender: ALEXION PHARMACEUTICALS
  Company Number: 2022A328569

PATIENT
  Age: 65 Year
  Sex: Female
  Weight: 34 kg

DRUGS (81)
  1. ROSUVASTATIN [Suspect]
     Active Substance: ROSUVASTATIN
     Indication: Product used for unknown indication
  2. ROSUVASTATIN [Suspect]
     Active Substance: ROSUVASTATIN
  3. ROSUVASTATIN [Suspect]
     Active Substance: ROSUVASTATIN
     Route: 065
  4. THEOPHYLLINE [Suspect]
     Active Substance: THEOPHYLLINE
     Route: 065
  5. THEOPHYLLINE [Suspect]
     Active Substance: THEOPHYLLINE
  6. THEOPHYLLINE [Suspect]
     Active Substance: THEOPHYLLINE
     Route: 065
  7. THEOPHYLLINE [Suspect]
     Active Substance: THEOPHYLLINE
     Route: 065
  8. ASPIRIN [Suspect]
     Active Substance: ASPIRIN
     Route: 065
  9. ASPIRIN [Suspect]
     Active Substance: ASPIRIN
     Route: 065
  10. ASPIRIN [Suspect]
     Active Substance: ASPIRIN
     Route: 065
  11. AMLODIPINE BESYLATE [Suspect]
     Active Substance: AMLODIPINE BESYLATE
  12. AMLODIPINE BESYLATE [Suspect]
     Active Substance: AMLODIPINE BESYLATE
  13. AMLODIPINE BESYLATE [Suspect]
     Active Substance: AMLODIPINE BESYLATE
     Route: 065
  14. MOXIFLOXACIN [Suspect]
     Active Substance: MOXIFLOXACIN
     Route: 065
  15. MOXIFLOXACIN [Suspect]
     Active Substance: MOXIFLOXACIN
     Route: 065
  16. BECLOMETHASONE [Suspect]
     Active Substance: BECLOMETHASONE
     Route: 065
  17. BECLOMETHASONE [Suspect]
     Active Substance: BECLOMETHASONE
     Route: 065
  18. CALCIUM CARBONATE [Suspect]
     Active Substance: CALCIUM CARBONATE
     Route: 065
  19. CALCIUM CARBONATE [Suspect]
     Active Substance: CALCIUM CARBONATE
     Route: 065
  20. CIPROFLOXACIN [Suspect]
     Active Substance: CIPROFLOXACIN
     Route: 065
  21. CIPROFLOXACIN [Suspect]
     Active Substance: CIPROFLOXACIN
     Route: 065
  22. CIPROFLOXACIN [Suspect]
     Active Substance: CIPROFLOXACIN
     Route: 065
  23. CLONAZEPAM [Suspect]
     Active Substance: CLONAZEPAM
     Route: 065
  24. CLONAZEPAM [Suspect]
     Active Substance: CLONAZEPAM
     Route: 065
  25. CLONAZEPAM [Suspect]
     Active Substance: CLONAZEPAM
     Route: 065
  26. CLONAZEPAM [Suspect]
     Active Substance: CLONAZEPAM
     Route: 065
  27. ADVAIR HFA [Suspect]
     Active Substance: FLUTICASONE PROPIONATE\SALMETEROL XINAFOATE
     Route: 065
  28. ADVAIR HFA [Suspect]
     Active Substance: FLUTICASONE PROPIONATE\SALMETEROL XINAFOATE
     Route: 065
  29. FOLATE SODIUM [Suspect]
     Active Substance: FOLATE SODIUM
     Route: 065
  30. FOLATE SODIUM [Suspect]
     Active Substance: FOLATE SODIUM
     Route: 065
  31. PREDNISONE [Suspect]
     Active Substance: PREDNISONE
     Route: 065
  32. PREDNISONE [Suspect]
     Active Substance: PREDNISONE
     Route: 065
  33. RISEDRONATE SODIUM [Suspect]
     Active Substance: RISEDRONATE SODIUM
     Route: 065
  34. RISEDRONATE SODIUM [Suspect]
     Active Substance: RISEDRONATE SODIUM
     Route: 065
  35. RITUXIMAB [Suspect]
     Active Substance: RITUXIMAB
     Route: 065
  36. RITUXIMAB [Suspect]
     Active Substance: RITUXIMAB
  37. RITUXIMAB [Suspect]
     Active Substance: RITUXIMAB
     Route: 065
  38. RITUXIMAB [Suspect]
     Active Substance: RITUXIMAB
     Route: 065
  39. SINGULAIR [Suspect]
     Active Substance: MONTELUKAST SODIUM
     Route: 065
  40. SINGULAIR [Suspect]
     Active Substance: MONTELUKAST SODIUM
     Route: 065
  41. TRAMADOL HYDROCHLORIDE [Suspect]
     Active Substance: TRAMADOL HYDROCHLORIDE
     Route: 065
  42. TRAMADOL HYDROCHLORIDE [Suspect]
     Active Substance: TRAMADOL HYDROCHLORIDE
  43. TRAMADOL HYDROCHLORIDE [Suspect]
     Active Substance: TRAMADOL HYDROCHLORIDE
     Route: 065
  44. TRAMADOL HYDROCHLORIDE [Suspect]
     Active Substance: TRAMADOL HYDROCHLORIDE
     Route: 065
  45. VITAMIN D [Suspect]
     Active Substance: VITAMIN D NOS
     Route: 065
  46. VITAMIN D [Suspect]
     Active Substance: VITAMIN D NOS
     Route: 065
  47. XOLAIR [Suspect]
     Active Substance: OMALIZUMAB
  48. XOLAIR [Suspect]
     Active Substance: OMALIZUMAB
  49. XOLAIR [Suspect]
     Active Substance: OMALIZUMAB
  50. ERGOCALCIFEROL [Suspect]
     Active Substance: ERGOCALCIFEROL
     Route: 065
  51. ERGOCALCIFEROL [Suspect]
     Active Substance: ERGOCALCIFEROL
  52. ERGOCALCIFEROL [Suspect]
     Active Substance: ERGOCALCIFEROL
     Route: 065
  53. ERGOCALCIFEROL [Suspect]
     Active Substance: ERGOCALCIFEROL
     Route: 065
  54. CALCIUM [Suspect]
     Active Substance: CALCIUM
     Route: 065
  55. CALCIUM [Suspect]
     Active Substance: CALCIUM
     Route: 065
  56. FOLIC ACID [Suspect]
     Active Substance: FOLIC ACID
     Route: 065
  57. FOLIC ACID [Suspect]
     Active Substance: FOLIC ACID
     Route: 065
  58. CIPROFLOXACIN [Suspect]
     Active Substance: CIPROFLOXACIN
     Route: 065
  59. CIPROFLOXACIN [Suspect]
     Active Substance: CIPROFLOXACIN
     Route: 065
  60. MOXIFLOXACIN HYDROCHLORIDE [Suspect]
     Active Substance: MOXIFLOXACIN HYDROCHLORIDE
     Route: 065
  61. MOXIFLOXACIN HYDROCHLORIDE [Suspect]
     Active Substance: MOXIFLOXACIN HYDROCHLORIDE
     Route: 065
  62. ACETAMINOPHEN\TRAMADOL [Suspect]
     Active Substance: ACETAMINOPHEN\TRAMADOL
     Indication: Cough
     Route: 065
  63. ACETAMINOPHEN\TRAMADOL [Suspect]
     Active Substance: ACETAMINOPHEN\TRAMADOL
     Route: 065
  64. AMINOPHYLLINE [Suspect]
     Active Substance: AMINOPHYLLINE
     Route: 065
  65. AMINOPHYLLINE [Suspect]
     Active Substance: AMINOPHYLLINE
     Route: 065
  66. CEFADROXIL [Concomitant]
     Active Substance: CEFADROXIL
     Dosage: 500 MILLIGRAM, BID
     Route: 065
  67. CEFADROXIL [Concomitant]
     Active Substance: CEFADROXIL
     Dosage: 500 MG, 1 DOSE 12 HOURS
     Route: 065
  68. ROPIVACAINE HYDROCHLORIDE [Suspect]
     Active Substance: ROPIVACAINE HYDROCHLORIDE
     Route: 065
  69. ACETAMINOPHEN [Suspect]
     Active Substance: ACETAMINOPHEN
     Route: 065
  70. CALCIUM LACTATE [Suspect]
     Active Substance: CALCIUM LACTATE
     Route: 065
  71. OMALIZUMAB [Suspect]
     Active Substance: OMALIZUMAB
  72. OMALIZUMAB [Suspect]
     Active Substance: OMALIZUMAB
  73. OMALIZUMAB [Suspect]
     Active Substance: OMALIZUMAB
  74. OMALIZUMAB [Suspect]
     Active Substance: OMALIZUMAB
  75. FLUTICASONE FUROATE [Suspect]
     Active Substance: FLUTICASONE FUROATE
     Route: 065
  76. MONTELUKAST [Suspect]
     Active Substance: MONTELUKAST
     Route: 065
  77. CIPROFLOXACIN HYDROCHLORIDE [Suspect]
     Active Substance: CIPROFLOXACIN HYDROCHLORIDE
     Route: 065
  78. FLUTICASONE [Suspect]
     Active Substance: FLUTICASONE
     Route: 065
  79. FLUTICASONE PROPIONATE [Suspect]
     Active Substance: FLUTICASONE PROPIONATE
     Route: 065
  80. HYDROMORPHONE [Suspect]
     Active Substance: HYDROMORPHONE
     Route: 065
  81. HYDROMORPHONE HYDROCHLORIDE [Suspect]
     Active Substance: HYDROMORPHONE HYDROCHLORIDE

REACTIONS (13)
  - Asthma [Not Recovered/Not Resolved]
  - Chest pain [Not Recovered/Not Resolved]
  - Cough [Not Recovered/Not Resolved]
  - Drug hypersensitivity [Not Recovered/Not Resolved]
  - Dyspnoea [Not Recovered/Not Resolved]
  - Malaise [Not Recovered/Not Resolved]
  - Nasal oedema [Not Recovered/Not Resolved]
  - Oedema [Not Recovered/Not Resolved]
  - Pain [Not Recovered/Not Resolved]
  - Pneumonia [Not Recovered/Not Resolved]
  - Respiratory tract infection [Not Recovered/Not Resolved]
  - Vomiting [Not Recovered/Not Resolved]
  - Wheezing [Not Recovered/Not Resolved]
